FAERS Safety Report 9496504 (Version 2)
Quarter: 2013Q3

REPORT INFORMATION
  Report Type: Spontaneous
  Country: US (occurrence: US)
  Receive Date: 20130904
  Receipt Date: 20130926
  Transmission Date: 20140515
  Serious: Yes (Hospitalization, Other)
  Sender: FDA-Public Use
  Company Number: PHEH2013US018520

PATIENT
  Age: 68 Year
  Sex: Female

DRUGS (17)
  1. MYFORTIC [Suspect]
     Indication: LUNG TRANSPLANT
     Dosage: 180 MG, BID
  2. NON-DRUG: PHOTOPHERESIS [Concomitant]
     Dosage: UNK UKN, UNK
     Dates: start: 201204
  3. PROCARDIA XL [Concomitant]
     Dosage: UNK UKN, UNK
  4. LORAZEPAM [Concomitant]
     Dosage: UNK UKN, UNK
  5. ACYCLOVIR [Concomitant]
     Dosage: UNK UKN, UNK
  6. CITRICAL//CALCIUM [Concomitant]
     Dosage: UNK UKN, UNK
  7. BACTRIM DS [Concomitant]
     Dosage: UNK UKN, UNK
  8. OMEPRAZOLE [Concomitant]
     Dosage: UNK UKN, UNK
  9. LEXAPRO [Concomitant]
     Dosage: UNK UKN, UNK
  10. PRAVACHOL [Concomitant]
     Dosage: UNK UKN, UNK
  11. PREDNISONE [Concomitant]
     Dosage: UNK UKN, UNK
  12. AZITHROMYCIN [Concomitant]
  13. AMOXIL//AMOXICILLIN [Concomitant]
     Dosage: 1 HR BEFORE A DENTIST APPTU
  14. PROGRAF [Concomitant]
     Dosage: 1 MG, 1/2 MG MORNUNG AND AT NIGHT
  15. VIT D [Concomitant]
     Dosage: 1000 IU, UNK
  16. VIT C [Concomitant]
  17. COUMADIN//COUMARIN [Concomitant]

REACTIONS (4)
  - Thrombosis [Recovered/Resolved]
  - Brain hypoxia [Unknown]
  - Lung transplant rejection [Unknown]
  - Decreased appetite [Unknown]
